FAERS Safety Report 9527054 (Version 1)
Quarter: 2013Q3

REPORT INFORMATION
  Report Type: Spontaneous
  Country: NL (occurrence: NL)
  Receive Date: 20130916
  Receipt Date: 20130916
  Transmission Date: 20140515
  Serious: Yes (Other)
  Sender: FDA-Public Use
  Company Number: NL-PFIZER INC-2013261763

PATIENT
  Sex: 0

DRUGS (1)
  1. LATANOPROST PFIZER [Suspect]

REACTIONS (1)
  - Intraocular pressure increased [Unknown]
